FAERS Safety Report 14024997 (Version 2)
Quarter: 2017Q4

REPORT INFORMATION
  Report Type: Spontaneous
  Country: US (occurrence: US)
  Receive Date: 20170928
  Receipt Date: 20171016
  Transmission Date: 20180321
  Serious: No
  Sender: FDA-Public Use
  Company Number: US-SA-2017SA026152

PATIENT
  Age: 51 Year
  Sex: Male

DRUGS (8)
  1. REBIF [Concomitant]
     Active Substance: INTERFERON BETA-1A
  2. TOLTERODINE TARTRATE. [Concomitant]
     Active Substance: TOLTERODINE TARTRATE
  3. AMPYRA [Concomitant]
     Active Substance: DALFAMPRIDINE
  4. VITAMIN C [Concomitant]
     Active Substance: ASCORBIC ACID
  5. RITALIN [Concomitant]
     Active Substance: METHYLPHENIDATE HYDROCHLORIDE
  6. FLOMAX [Concomitant]
     Active Substance: TAMSULOSIN HYDROCHLORIDE
  7. AUBAGIO [Suspect]
     Active Substance: TERIFLUNOMIDE
     Indication: MULTIPLE SCLEROSIS
     Route: 048
  8. VITAMIN D3 [Concomitant]
     Active Substance: CHOLECALCIFEROL

REACTIONS (4)
  - Sinusitis [Recovering/Resolving]
  - Nasopharyngitis [Recovering/Resolving]
  - Fatigue [Recovering/Resolving]
  - Aphonia [Recovering/Resolving]
